FAERS Safety Report 19750812 (Version 1)
Quarter: 2021Q3

REPORT INFORMATION
  Report Type: Other
  Country: IT (occurrence: IT)
  Receive Date: 20210826
  Receipt Date: 20210826
  Transmission Date: 20211014
  Serious: Yes (Other)
  Sender: FDA-Public Use
  Company Number: IT-B.BRAUN MEDICAL INC.-2115684

PATIENT
  Age: 40 Year
  Sex: Male

DRUGS (23)
  1. ETHACRYNIC ACID. [Concomitant]
     Active Substance: ETHACRYNIC ACID
  2. PROPOFOL. [Concomitant]
     Active Substance: PROPOFOL
  3. MIDAZOLAM. [Concomitant]
     Active Substance: MIDAZOLAM
  4. HYDROXYZINE [Concomitant]
     Active Substance: HYDROXYZINE HYDROCHLORIDE
  5. LOPINAVIR?RITONAVIR [Concomitant]
     Active Substance: LOPINAVIR\RITONAVIR
  6. FUROSEMIDE. [Concomitant]
     Active Substance: FUROSEMIDE
  7. DAPTOMYCIN. [Concomitant]
     Active Substance: DAPTOMYCIN
  8. HYDROXYCHLOROQUINE [Suspect]
     Active Substance: HYDROXYCHLOROQUINE
  9. FENTANYL. [Concomitant]
     Active Substance: FENTANYL
  10. ENOXAPARIN [Concomitant]
     Active Substance: ENOXAPARIN
  11. MEROPENEM. [Concomitant]
     Active Substance: MEROPENEM
  12. AZITHROMYCIN ANHYDROUS. [Concomitant]
     Active Substance: AZITHROMYCIN ANHYDROUS
  13. NEBIVOLOL. [Concomitant]
     Active Substance: NEBIVOLOL
  14. NOREPINEPHRINE. [Concomitant]
     Active Substance: NOREPINEPHRINE
  15. PREDNISONE. [Concomitant]
     Active Substance: PREDNISONE
  16. CEFTRIAXONE FOR INJECTION AND DEXTROSE INJECTION 0264?3153?11 (NDA 050 [Suspect]
     Active Substance: CEFTRIAXONE SODIUM
  17. CELECOXIB. [Concomitant]
     Active Substance: CELECOXIB
  18. OSELTAMIVIR [Concomitant]
     Active Substance: OSELTAMIVIR
  19. ANAKINRA [Concomitant]
     Active Substance: ANAKINRA
  20. OMEPRAZOLE. [Concomitant]
     Active Substance: OMEPRAZOLE
  21. CISATRACURIUM. [Concomitant]
     Active Substance: CISATRACURIUM
  22. HUMAN ALBUMIN [Concomitant]
     Active Substance: ALBUMIN HUMAN
  23. LINEZOLID. [Concomitant]
     Active Substance: LINEZOLID

REACTIONS (1)
  - Drug reaction with eosinophilia and systemic symptoms [Recovered/Resolved]
